FAERS Safety Report 23020419 (Version 1)
Quarter: 2023Q4

REPORT INFORMATION
  Report Type: Spontaneous
  Country: AR (occurrence: AR)
  Receive Date: 20231003
  Receipt Date: 20231003
  Transmission Date: 20240110
  Serious: Yes (Other)
  Sender: FDA-Public Use
  Company Number: AR-PFIZER INC-PV202300160675

PATIENT
  Age: 69 Year
  Sex: Female

DRUGS (1)
  1. SOMAVERT [Suspect]
     Active Substance: PEGVISOMANT
     Indication: Acromegaly
     Dosage: 15 MG, CYCLIC (7 TIMES PER WEEK)
     Dates: start: 20221207, end: 20230829

REACTIONS (2)
  - Neoplasm [Not Recovered/Not Resolved]
  - Insulin resistance [Not Recovered/Not Resolved]
